FAERS Safety Report 8727049 (Version 14)
Quarter: 2015Q3

REPORT INFORMATION
  Report Type: Report from Study
  Country: JP (occurrence: JP)
  Receive Date: 20120816
  Receipt Date: 20150807
  Transmission Date: 20151125
  Serious: Yes (Life-Threatening, Hospitalization, Other)
  Sender: FDA-Public Use
  Company Number: JP-GLAXOSMITHKLINE-Z0016523A

PATIENT
  Age: 41 Year
  Sex: Female
  Weight: 54.5 kg

DRUGS (3)
  1. LENDORMIN D [Suspect]
     Active Substance: BROTIZOLAM
     Indication: INSOMNIA
     Route: 048
     Dates: start: 20110822
  2. OFATUMUMAB [Suspect]
     Active Substance: OFATUMUMAB
     Indication: B-CELL LYMPHOMA
     Dosage: 1000 MG IV CYCLIC
     Route: 042
     Dates: start: 20111012, end: 20120316
  3. ACICLOVIR [Suspect]
     Active Substance: ACYCLOVIR
     Indication: ANTIVIRAL PROPHYLAXIS
     Route: 048
     Dates: start: 20111107, end: 20120516

REACTIONS (1)
  - Toxic epidermal necrolysis [Not Recovered/Not Resolved]

NARRATIVE: CASE EVENT DATE: 20120831
